FAERS Safety Report 9365323 (Version 1)
Quarter: 2013Q2

REPORT INFORMATION
  Report Type: Spontaneous
  Country: SI (occurrence: SI)
  Receive Date: 20130625
  Receipt Date: 20130625
  Transmission Date: 20140414
  Serious: Yes (Hospitalization, Other)
  Sender: FDA-Public Use
  Company Number: SI-009507513-1306SVN010075

PATIENT
  Age: 64 Year
  Sex: Male

DRUGS (9)
  1. EZETROL [Suspect]
     Indication: HYPERLIPIDAEMIA
     Dosage: DAILY DOSE:10 MG
     Route: 048
     Dates: end: 20130422
  2. CRESTOR [Concomitant]
     Indication: HYPERLIPIDAEMIA
     Dosage: 40 MG
     Route: 048
     Dates: end: 20130422
  3. CONCOR [Concomitant]
     Dosage: 2.5 MG
     Route: 048
  4. PRENEWEL [Concomitant]
     Dosage: 4/1.25
     Route: 048
  5. DIUVER [Concomitant]
     Dosage: 10 MG
     Route: 048
  6. HYDROCORTISONE [Concomitant]
     Dosage: 10 + 5+ 5
     Route: 048
  7. RANITAL [Concomitant]
     Dosage: 2X 150 MG
  8. PLIVIT D3 [Concomitant]
     Dosage: 70 GTT, QW
  9. ASPIRIN [Concomitant]
     Dosage: 100 MG

REACTIONS (3)
  - Renal failure chronic [Recovering/Resolving]
  - Rhabdomyolysis [Recovering/Resolving]
  - Myopathy [Recovering/Resolving]
